FAERS Safety Report 7321177-4 (Version None)
Quarter: 2011Q1

REPORT INFORMATION
  Report Type: 
  Country: None (occurrence: None)
  Receive Date: 20110228
  Receipt Date: 20110223
  Transmission Date: 20110831
  Serious: Yes (Other)
  Sender: FDA-Public Use
  Company Number: US-PFIZER INC-2010030297

PATIENT
  Sex: Male
  Weight: 95.692 kg

DRUGS (4)
  1. SUTENT [Suspect]
     Indication: GASTROINTESTINAL STROMAL TUMOUR
     Dosage: 50 MG, 1X/DAY
     Route: 048
     Dates: start: 20100218
  2. DEXLANSOPRAZOLE [Concomitant]
     Indication: GASTRIC DISORDER
     Dosage: 60 MG, UNK
  3. SUTENT [Suspect]
     Dosage: 50 MG, DAILY
     Route: 048
     Dates: start: 20100101
  4. ATENOLOL [Concomitant]
     Indication: HYPERTENSION
     Dosage: 25 MG, UNK

REACTIONS (4)
  - HYPERTENSION [None]
  - YELLOW SKIN [None]
  - TRIGEMINAL NERVE DISORDER [None]
  - PALMAR-PLANTAR ERYTHRODYSAESTHESIA SYNDROME [None]
